FAERS Safety Report 9110224 (Version 7)
Quarter: 2014Q2

REPORT INFORMATION
  Report Type: Spontaneous
  Country: BR (occurrence: BR)
  Receive Date: 20130222
  Receipt Date: 20140602
  Transmission Date: 20141212
  Serious: Yes (Death, Other)
  Sender: FDA-Public Use
  Company Number: BR-ROCHE-1193072

PATIENT
  Sex: Male
  Weight: 70 kg

DRUGS (11)
  1. MABTHERA [Suspect]
     Indication: NON-HODGKIN^S LYMPHOMA
     Route: 065
  2. CYCLOPHOSPHAMIDE [Suspect]
     Indication: NON-HODGKIN^S LYMPHOMA
     Route: 065
  3. DOXORUBICIN HCL [Suspect]
     Indication: NON-HODGKIN^S LYMPHOMA
     Route: 065
  4. VINCRISTINE [Suspect]
     Indication: NON-HODGKIN^S LYMPHOMA
     Route: 065
  5. PREDNISONE [Suspect]
     Indication: NON-HODGKIN^S LYMPHOMA
     Route: 065
  6. OXALIPLATIN [Suspect]
     Indication: NON-HODGKIN^S LYMPHOMA
     Route: 065
  7. GEMCITABINE [Suspect]
     Indication: NON-HODGKIN^S LYMPHOMA
     Route: 065
  8. ETOPOSIDE [Suspect]
     Indication: NON-HODGKIN^S LYMPHOMA
     Route: 065
  9. CYTARABINE [Suspect]
     Indication: NON-HODGKIN^S LYMPHOMA
     Route: 065
  10. CISPLATINUM [Suspect]
     Indication: NON-HODGKIN^S LYMPHOMA
     Route: 065
  11. METHYLPREDNISOLONE [Suspect]
     Indication: NON-HODGKIN^S LYMPHOMA
     Route: 065

REACTIONS (9)
  - Disease progression [Fatal]
  - Drug ineffective [Unknown]
  - Necrosis [Recovered/Resolved]
  - Erysipelas [Recovering/Resolving]
  - Peripheral swelling [Unknown]
  - Haematotoxicity [Unknown]
  - Pancytopenia [Fatal]
  - Ascites [Fatal]
  - Hepatic function abnormal [Fatal]
